FAERS Safety Report 4354199-6 (Version None)
Quarter: 2004Q2

REPORT INFORMATION
  Report Type: 
  Country: None (occurrence: None)
  Receive Date: 20040506
  Receipt Date: 20040428
  Transmission Date: 20050107
  Serious: Yes (Hospitalization)
  Sender: FDA-Public Use
  Company Number: PHBS2004CL05899

PATIENT
  Sex: Female

DRUGS (2)
  1. LAMISIL [Suspect]
     Route: 048
  2. CONTRAST MEDIA [Suspect]
     Route: 065

REACTIONS (2)
  - DRUG INTERACTION [None]
  - RASH [None]
